FAERS Safety Report 16163443 (Version 1)
Quarter: 2019Q2

REPORT INFORMATION
  Report Type: Spontaneous
  Country: US (occurrence: US)
  Receive Date: 20190405
  Receipt Date: 20190405
  Transmission Date: 20190711
  Serious: Yes (Other)
  Sender: FDA-Public Use
  Company Number: US-ORPHAN EUROPE-2065374

PATIENT
  Age: 54 Year
  Sex: Male

DRUGS (1)
  1. CARBAGLU [Suspect]
     Active Substance: CARGLUMIC ACID
     Indication: N-ACETYLGLUTAMATE SYNTHASE DEFICIENCY
     Dates: start: 200811

REACTIONS (5)
  - Dysgeusia [Unknown]
  - Drug ineffective [Unknown]
  - Peripheral artery bypass [Unknown]
  - Product dose omission [Unknown]
  - Dysgeusia [None]
